FAERS Safety Report 17346422 (Version 1)
Quarter: 2020Q1

REPORT INFORMATION
  Report Type: Report from Study
  Country: None (occurrence: CA)
  Receive Date: 20200129
  Receipt Date: 20200129
  Transmission Date: 20200409
  Serious: Yes (Hospitalization)
  Sender: FDA-Public Use
  Company Number: CA-ABBVIE-20K-028-3254843-00

PATIENT
  Age: 68 Year
  Sex: Male

DRUGS (1)
  1. HUMIRA [Suspect]
     Active Substance: ADALIMUMAB
     Indication: RHEUMATOID ARTHRITIS
     Route: 058
     Dates: start: 20171010, end: 201906

REACTIONS (7)
  - Necrosis [Not Recovered/Not Resolved]
  - Skin discolouration [Unknown]
  - Finger amputation [Unknown]
  - Temperature intolerance [Unknown]
  - Dermatitis contact [Unknown]
  - Pigmentation disorder [Not Recovered/Not Resolved]
  - Streptococcal infection [Unknown]

NARRATIVE: CASE EVENT DATE: 201906
